FAERS Safety Report 24351523 (Version 1)
Quarter: 2024Q3

REPORT INFORMATION
  Report Type: Report from Study
  Country: US (occurrence: US)
  Receive Date: 20240923
  Receipt Date: 20240923
  Transmission Date: 20241017
  Serious: No
  Sender: ROCHE
  Company Number: US-ROCHE-3552289

PATIENT
  Age: 40 Year
  Sex: Female

DRUGS (14)
  1. HERCEPTIN [Suspect]
     Active Substance: TRASTUZUMAB
     Indication: Breast cancer female
     Route: 042
  2. HERCEPTIN [Suspect]
     Active Substance: TRASTUZUMAB
     Indication: Oestrogen receptor assay negative
  3. PERJETA [Suspect]
     Active Substance: PERTUZUMAB
     Indication: Breast cancer female
     Route: 042
  4. PERJETA [Suspect]
     Active Substance: PERTUZUMAB
     Indication: Oestrogen receptor assay negative
  5. CLINDAMYCIN [Concomitant]
     Active Substance: CLINDAMYCIN
  6. ANUSOL HC [Concomitant]
     Active Substance: HYDROCORTISONE
  7. LORATADINE [Concomitant]
     Active Substance: LORATADINE
  8. MAGNESIUM OXIDE [Concomitant]
     Active Substance: MAGNESIUM OXIDE
  9. TYLENOL [Concomitant]
     Active Substance: ACETAMINOPHEN
  10. BENADRYL [Concomitant]
     Active Substance: DIPHENHYDRAMINE HYDROCHLORIDE
  11. EPIPEN [Concomitant]
     Active Substance: EPINEPHRINE
  12. PEPCID [Concomitant]
     Active Substance: FAMOTIDINE
  13. SOLU-CORTEF [Concomitant]
     Active Substance: HYDROCORTISONE SODIUM SUCCINATE
  14. K-DUR [Concomitant]
     Active Substance: POTASSIUM CHLORIDE

REACTIONS (6)
  - Hepatic lesion [Unknown]
  - Malabsorption [Unknown]
  - Iron deficiency anaemia [Unknown]
  - Skin papilloma [Unknown]
  - Off label use [Unknown]
  - Off label use [Unknown]
